FAERS Safety Report 14306626 (Version 1)
Quarter: 2017Q4

REPORT INFORMATION
  Report Type: Spontaneous
  Country: US (occurrence: US)
  Receive Date: 20171220
  Receipt Date: 20171220
  Transmission Date: 20180321
  Serious: No
  Sender: FDA-Public Use
  Company Number: US-BIOGEN-2017BI00496000

PATIENT
  Age: 47 Year
  Sex: Female

DRUGS (1)
  1. AVONEX [Suspect]
     Active Substance: INTERFERON BETA-1A
     Indication: MULTIPLE SCLEROSIS
     Route: 065

REACTIONS (7)
  - Feeling abnormal [Unknown]
  - Paranoia [Unknown]
  - Band sensation [Not Recovered/Not Resolved]
  - Influenza like illness [Recovered/Resolved]
  - Chest discomfort [Not Recovered/Not Resolved]
  - Musculoskeletal pain [Not Recovered/Not Resolved]
  - Chills [Recovered/Resolved]

NARRATIVE: CASE EVENT DATE: 20171211
